FAERS Safety Report 5345869-1 (Version None)
Quarter: 2007Q2

REPORT INFORMATION
  Report Type: 
  Country: None (occurrence: None)
  Receive Date: 20070426
  Receipt Date: 20060320
  Transmission Date: 20071010
  Serious: Yes (Hospitalization, Disabling, Other)
  Sender: FDA-Public Use
  Company Number: US-JNJFOC-20060200383

PATIENT
  Age: 80 Year
  Sex: Female

DRUGS (2)
  1. RAZADYNE [Suspect]
     Indication: DEMENTIA ALZHEIMER'S TYPE
     Dosage: 12 MG, 1 IN 1 DAY
     Dates: start: 20000101, end: 20060115
  2. NAMENDA [Concomitant]

REACTIONS (1)
  - CEREBROVASCULAR ACCIDENT [None]
